FAERS Safety Report 8817311 (Version 1)
Quarter: 2012Q4

REPORT INFORMATION
  Report Type: 
  Country: AT (occurrence: AT)
  Receive Date: 20121004
  Receipt Date: 20121004
  Transmission Date: 20130627
  Serious: Yes (Other)
  Sender: FDA-Public Use
  Company Number: AT-B.I. PHARMACEUTICALS,INC./RIDGEFIELD-2011-AP-00666AP

PATIENT
  Age: 36 Year
  Sex: Female
  Weight: 130 kg

DRUGS (2)
  1. MICARDIS [Suspect]
     Indication: HYPERTENSION
     Dosage: 20 mg
  2. JANUVIA 100 [Concomitant]
     Indication: TYPE 2 DIABETES MELLITUS
     Dosage: once daily
     Route: 048

REACTIONS (1)
  - Abortion spontaneous [Unknown]
